FAERS Safety Report 18603856 (Version 1)
Quarter: 2020Q4

REPORT INFORMATION
  Report Type: Report from Study
  Country: BR (occurrence: BR)
  Receive Date: 20201211
  Receipt Date: 20201211
  Transmission Date: 20210114
  Serious: Yes (Hospitalization, Other)
  Sender: FDA-Public Use
  Company Number: BR-JNJFOC-20201207432

PATIENT
  Age: 39 Year
  Sex: Female
  Weight: 70 kg

DRUGS (2)
  1. STELARA [Suspect]
     Active Substance: USTEKINUMAB
  2. STELARA [Suspect]
     Active Substance: USTEKINUMAB
     Indication: PSORIASIS
     Dosage: 08-DEC-2018 (ACCORDING TO PSP)?04-DEC-2018 (ACCORDING TO PATIENT)
     Route: 058
     Dates: start: 20181204

REACTIONS (4)
  - Visual impairment [Unknown]
  - Vomiting [Unknown]
  - Blister [Unknown]
  - Headache [Unknown]
